FAERS Safety Report 6709612-3 (Version None)
Quarter: 2010Q2

REPORT INFORMATION
  Report Type: 
  Country: None (occurrence: None)
  Receive Date: 20100504
  Receipt Date: 20100426
  Transmission Date: 20101027
  Serious: Yes (Hospitalization, Other)
  Sender: FDA-Public Use
  Company Number: BR-ROCHE-697707

PATIENT
  Sex: Male
  Weight: 60 kg

DRUGS (4)
  1. XELODA [Suspect]
     Dosage: FREQUENCY: 7 TABLETS A DAY (4 IN MORNING AND 3 AT NIGHT). SHE TOOK TOTAL OF 98 TABLETS.
     Route: 065
     Dates: start: 20100317, end: 20100331
  2. PANTOPRAZOLE [Concomitant]
     Dosage: FREQUENCY: 1 TABLET A DAY/FASTING. THERAPY START DATE: AFTER 15 JAN 2010
     Dates: start: 20100115
  3. MOTILIUM [Concomitant]
     Indication: NAUSEA
     Dosage: FREQUENCY: 1 TABLET BEFORE OR AFTER MEALS (LUNCH AND DINNER). THERAPY INTERRUPTED.
     Dates: start: 20100201, end: 20100401
  4. MOTILIUM [Concomitant]
     Dosage: THE PATIENT TOOK MOTILIUM WHEN HE PRESENTED NAUSEA.

REACTIONS (21)
  - ANAEMIA [None]
  - ASTHENIA [None]
  - CHAPPED LIPS [None]
  - DECREASED APPETITE [None]
  - DIARRHOEA [None]
  - DIZZINESS [None]
  - FEBRILE NEUTROPENIA [None]
  - HYPOKALAEMIA [None]
  - HYPOTENSION [None]
  - LEUKOPENIA [None]
  - NAUSEA [None]
  - OEDEMA PERIPHERAL [None]
  - PLATELET COUNT DECREASED [None]
  - PROTEIN TOTAL ABNORMAL [None]
  - PYREXIA [None]
  - SKIN CHAPPED [None]
  - SKIN EXFOLIATION [None]
  - SWELLING [None]
  - TOOTHACHE [None]
  - TREMOR [None]
  - WEIGHT DECREASED [None]
